FAERS Safety Report 8577558 (Version 2)
Quarter: 2012Q4

REPORT INFORMATION
  Report Type: 
  Country: GB (occurrence: GB)
  Receive Date: 20120524
  Receipt Date: 20121220
  Transmission Date: 20130627
  Serious: Yes (Death, Hospitalization)
  Sender: FDA-Public Use
  Company Number: GB-UCBSA-057673

PATIENT
  Age: 64 Year
  Sex: Male
  Weight: 90.7 kg

DRUGS (14)
  1. CERTOLIZUMAB PEGOL [Suspect]
     Indication: RHEUMATOID ARTHRITIS
     Route: 058
     Dates: start: 20120316, end: 20120316
  2. AMITRIPTYLINE [Concomitant]
  3. ASPIRIN [Concomitant]
  4. ATORVASTATIN [Concomitant]
  5. BISOPROLOL [Concomitant]
  6. FOLIC ACID [Concomitant]
  7. FUROSEMIDE [Concomitant]
  8. GLYCERYL TRINITRATE [Concomitant]
  9. METHOTREXATE [Concomitant]
  10. NAPROXEN [Concomitant]
  11. NICORANDIL [Concomitant]
  12. PARACETAMOL [Concomitant]
  13. PERINDOPRIL [Concomitant]
  14. PREDNISOLONE [Concomitant]

REACTIONS (5)
  - Pneumonia [Fatal]
  - Ischaemic stroke [Fatal]
  - Dyspnoea [Not Recovered/Not Resolved]
  - Respiratory disorder [Not Recovered/Not Resolved]
  - Hemiparesis [Not Recovered/Not Resolved]
